FAERS Safety Report 15164847 (Version 1)
Quarter: 2018Q3

REPORT INFORMATION
  Report Type: Spontaneous
  Country: US (occurrence: US)
  Receive Date: 20180719
  Receipt Date: 20180719
  Transmission Date: 20181010
  Serious: No
  Sender: FDA-Public Use
  Company Number: US-PFIZER INC-2018287157

PATIENT
  Age: 71 Year
  Sex: Male
  Weight: 100 kg

DRUGS (6)
  1. LIPITOR [Suspect]
     Active Substance: ATORVASTATIN CALCIUM
     Indication: BLOOD CHOLESTEROL INCREASED
     Dosage: 20 MG, 1X/DAY (IN THE MORNING)
     Route: 048
  2. LIPITOR [Suspect]
     Active Substance: ATORVASTATIN CALCIUM
     Dosage: 20 MG, 1X/DAY (IN THE MORNING)
     Route: 048
     Dates: start: 20180528, end: 20180629
  3. BABY ASPIRIN [Concomitant]
     Active Substance: ASPIRIN
     Indication: ANTICOAGULANT THERAPY
     Dosage: UNK UNK, 1X/DAY (70 OR 80 MG TABLET, HE IS NOT SURE)
     Route: 048
  4. FISH OIL [Concomitant]
     Active Substance: FISH OIL
     Indication: STRESS
     Dosage: 2400 MG, 2X/DAY
     Route: 048
     Dates: start: 2005
  5. FISH OIL [Concomitant]
     Active Substance: FISH OIL
     Indication: MYOCARDIAL INFARCTION
  6. TEA [Concomitant]
     Active Substance: TEA LEAF
     Dosage: UNK

REACTIONS (5)
  - Myalgia [Recovered/Resolved]
  - Limb discomfort [Recovering/Resolving]
  - Fall [Unknown]
  - Musculoskeletal pain [Recovering/Resolving]
  - Joint range of motion decreased [Recovering/Resolving]

NARRATIVE: CASE EVENT DATE: 2018
